FAERS Safety Report 13061266 (Version 1)
Quarter: 2016Q4

REPORT INFORMATION
  Report Type: Spontaneous
  Country: GB (occurrence: GB)
  Receive Date: 20161226
  Receipt Date: 20161226
  Transmission Date: 20170207
  Serious: Yes (Disabling, Other)
  Sender: FDA-Public Use
  Company Number: GB-ACCORD-046702

PATIENT
  Age: 29 Year
  Sex: Female
  Weight: 86.17 kg

DRUGS (9)
  1. AMITRIPTYLINE [Suspect]
     Active Substance: AMITRIPTYLINE
     Indication: SCIATICA
     Dosage: 1 - 2 TABLETS BEFORE BED
     Route: 048
     Dates: start: 20161102, end: 20161124
  2. PROPRANOLOL [Concomitant]
     Active Substance: PROPRANOLOL\PROPRANOLOL HYDROCHLORIDE
     Indication: BLOOD PRESSURE ABNORMAL
  3. OMEPRAZOLE. [Concomitant]
     Active Substance: OMEPRAZOLE
  4. IBUPROFEN. [Concomitant]
     Active Substance: IBUPROFEN
  5. LOPERAMIDE [Concomitant]
     Active Substance: LOPERAMIDE
  6. PAROXETINE. [Concomitant]
     Active Substance: PAROXETINE
  7. TRIMETHOPRIM/TRIMETHOPRIM LACTATE/TRIMETHOPRIM SULFATE [Concomitant]
  8. SUMATRIPTAN. [Concomitant]
     Active Substance: SUMATRIPTAN
  9. ASPAR PHARMS CO-CODAMOL [Concomitant]

REACTIONS (29)
  - Dizziness [Recovered/Resolved]
  - Tremor [Recovering/Resolving]
  - Irritability [Not Recovered/Not Resolved]
  - Panic attack [Not Recovered/Not Resolved]
  - Agitation [Recovering/Resolving]
  - Nightmare [Recovering/Resolving]
  - Irritable bowel syndrome [Not Recovered/Not Resolved]
  - Confusional state [Not Recovered/Not Resolved]
  - Fatigue [Not Recovered/Not Resolved]
  - Psychomotor hyperactivity [Recovered/Resolved]
  - Mood altered [Not Recovered/Not Resolved]
  - Amnesia [Not Recovered/Not Resolved]
  - Asthenia [Not Recovered/Not Resolved]
  - Impaired driving ability [Recovered/Resolved with Sequelae]
  - Off label use [Unknown]
  - Mood swings [Not Recovered/Not Resolved]
  - Disturbance in attention [Not Recovered/Not Resolved]
  - Coordination abnormal [Recovering/Resolving]
  - Emotional disorder [Not Recovered/Not Resolved]
  - Sweat discolouration [Recovering/Resolving]
  - Paraesthesia [Not Recovered/Not Resolved]
  - Anxiety [Not Recovered/Not Resolved]
  - Dry mouth [Recovering/Resolving]
  - Syncope [Recovered/Resolved with Sequelae]
  - Dysarthria [Recovering/Resolving]
  - Palpitations [Recovering/Resolving]
  - Decreased appetite [Not Recovered/Not Resolved]
  - Pollakiuria [Recovering/Resolving]
  - Decreased interest [Recovering/Resolving]
